FAERS Safety Report 15941603 (Version 1)
Quarter: 2019Q1

REPORT INFORMATION
  Report Type: Report from Study
  Country: None (occurrence: US)
  Receive Date: 20190208
  Receipt Date: 20190208
  Transmission Date: 20190417
  Serious: Yes (Hospitalization, Other)
  Sender: FDA-Public Use
  Company Number: US-ABBVIE-19S-163-2647356-00

PATIENT
  Sex: Male
  Weight: 68.55 kg

DRUGS (15)
  1. JANUVIA [Concomitant]
     Active Substance: SITAGLIPTIN PHOSPHATE
     Indication: TYPE 2 DIABETES MELLITUS
  2. CITALOPRAM [Concomitant]
     Active Substance: CITALOPRAM HYDROBROMIDE
     Indication: DEPRESSION
  3. CREON [Suspect]
     Active Substance: PANCRELIPASE AMYLASE\PANCRELIPASE LIPASE\PANCRELIPASE PROTEASE
     Dosage: CAPSULES WITH MEALS AND 1 CAPSULE WITH SNACKS
     Route: 048
     Dates: start: 201901, end: 201901
  4. METFORMIN [Concomitant]
     Active Substance: METFORMIN HYDROCHLORIDE
     Indication: TYPE 2 DIABETES MELLITUS
  5. XANAX [Concomitant]
     Active Substance: ALPRAZOLAM
     Indication: SLEEP DISORDER
  6. OMEPRAZOLE. [Concomitant]
     Active Substance: OMEPRAZOLE
     Indication: GASTROOESOPHAGEAL REFLUX DISEASE
  7. CREON [Suspect]
     Active Substance: PANCRELIPASE AMYLASE\PANCRELIPASE LIPASE\PANCRELIPASE PROTEASE
     Indication: PANCREATIC FAILURE
     Dosage: 1 CAPSULES WITH SNACKS AND 2 WITH MEALS
     Route: 048
     Dates: start: 2001, end: 2004
  8. RISPERIDONE. [Concomitant]
     Active Substance: RISPERIDONE
     Indication: SLEEP DISORDER
  9. LISINOPRIL. [Concomitant]
     Active Substance: LISINOPRIL
     Indication: BLOOD PRESSURE MEASUREMENT
  10. ACTOS [Concomitant]
     Active Substance: PIOGLITAZONE HYDROCHLORIDE
     Indication: TYPE 2 DIABETES MELLITUS
  11. XANAX [Concomitant]
     Active Substance: ALPRAZOLAM
     Indication: ANXIETY
  12. SULCRALFATE [Concomitant]
     Active Substance: SUCRALFATE
     Indication: DYSPHAGIA
  13. CREON [Suspect]
     Active Substance: PANCRELIPASE AMYLASE\PANCRELIPASE LIPASE\PANCRELIPASE PROTEASE
     Indication: PANCREATITIS CHRONIC
     Dosage: 2 CAPSULES WITH SNACKS AND 3 WITH MEALS
     Route: 048
     Dates: start: 2004, end: 201901
  14. CREON [Suspect]
     Active Substance: PANCRELIPASE AMYLASE\PANCRELIPASE LIPASE\PANCRELIPASE PROTEASE
     Dosage: 2 CAPSULES WITH SNACKS AND 3 WITH MEALS
     Route: 048
     Dates: start: 201901
  15. PERCOCET [Concomitant]
     Active Substance: ACETAMINOPHEN\OXYCODONE HYDROCHLORIDE
     Indication: PAIN

REACTIONS (12)
  - Septic shock [Recovered/Resolved]
  - Renal cyst [Recovered/Resolved]
  - Retching [Recovered/Resolved]
  - Pancreatic cyst [Recovered/Resolved]
  - Pancreatic cyst [Recovered/Resolved]
  - Nausea [Recovered/Resolved]
  - Haematoma infection [Recovered/Resolved]
  - Severe acute respiratory syndrome [Recovered/Resolved]
  - Pain [Recovered/Resolved]
  - Hypophagia [Recovered/Resolved]
  - Pancreatic necrosis [Recovered/Resolved]
  - Arterial injury [Recovered/Resolved]

NARRATIVE: CASE EVENT DATE: 2001
